FAERS Safety Report 8817321 (Version 2)
Quarter: 2012Q4

REPORT INFORMATION
  Report Type: 
  Country: DK (occurrence: GB)
  Receive Date: 20121004
  Receipt Date: 20121010
  Transmission Date: 20130627
  Serious: Yes (Other)
  Sender: FDA-Public Use
  Company Number: GB-FRI-1000039196

PATIENT
  Age: 75 Year
  Sex: Female

DRUGS (5)
  1. CITALOPRAM [Suspect]
  2. METHYLENE BLUE [Suspect]
     Indication: PARATHYROID GLAND OPERATION
     Dosage: 5.5 mg/kg in 300 ml 0.9% sodium chloride
     Route: 042
  3. TRAMADOL [Suspect]
     Indication: ANALGESIC THERAPY
  4. FENTANYL [Concomitant]
     Indication: ANALGESIC THERAPY
  5. ONDANSETRON [Concomitant]
     Indication: ANTIEMETIC SUPPORTIVE CARE

REACTIONS (2)
  - Serotonin syndrome [Unknown]
  - Drug interaction [Unknown]
